FAERS Safety Report 23159161 (Version 1)
Quarter: 2023Q4

REPORT INFORMATION
  Report Type: Spontaneous
  Country: US (occurrence: None)
  Receive Date: 20231107
  Receipt Date: 20231107
  Transmission Date: 20240110
  Serious: Yes (Other)
  Sender: FDA-Public Use
  Company Number: None

PATIENT
  Age: 55 Year
  Sex: Female

DRUGS (11)
  1. EZETIMIBE [Suspect]
     Active Substance: EZETIMIBE
     Indication: Blood cholesterol increased
     Dosage: OTHER QUANTITY : 90 TABLET(S);?FREQUENCY : AT BEDTIME;?
     Route: 048
     Dates: start: 20230609, end: 20231105
  2. ATORVASTATIN [Concomitant]
     Active Substance: ATORVASTATIN
  3. BROMOCRIPTINE [Concomitant]
     Active Substance: BROMOCRIPTINE
  4. SINGULAIR [Concomitant]
     Active Substance: MONTELUKAST SODIUM
  5. ZOLOFT [Concomitant]
     Active Substance: SERTRALINE HYDROCHLORIDE
  6. Trelergy [Concomitant]
  7. ATROVENT [Concomitant]
     Active Substance: IPRATROPIUM BROMIDE
  8. Liquid vitamin B 5 [Concomitant]
  9. Liquid vitamin D [Concomitant]
  10. FIBER [Concomitant]
  11. IRON [Concomitant]
     Active Substance: IRON

REACTIONS (6)
  - Atrial fibrillation [None]
  - Dyspnoea [None]
  - Illness [None]
  - Palpitations [None]
  - Therapy cessation [None]
  - Cardiac disorder [None]

NARRATIVE: CASE EVENT DATE: 20230905
